FAERS Safety Report 5394967-5 (Version None)
Quarter: 2007Q3

REPORT INFORMATION
  Report Type: 
  Country: None (occurrence: None)
  Receive Date: 20070724
  Receipt Date: 20070717
  Transmission Date: 20080115
  Serious: Yes (Other)
  Sender: FDA-Public Use
  Company Number: PHEH2007US10084

PATIENT
  Sex: Female

DRUGS (3)
  1. ZELNORM [Suspect]
  2. ANTIHYPERTENSIVE DRUGS [Concomitant]
  3. DRUG USED IN DIABETES [Concomitant]

REACTIONS (6)
  - ASTHENIA [None]
  - DIARRHOEA [None]
  - DIZZINESS [None]
  - HEADACHE [None]
  - NAUSEA [None]
  - PAIN [None]
